FAERS Safety Report 17205889 (Version 2)
Quarter: 2024Q1

REPORT INFORMATION
  Report Type: Spontaneous
  Country: KR (occurrence: KR)
  Receive Date: 20191227
  Receipt Date: 20240201
  Transmission Date: 20240410
  Serious: Yes (Hospitalization, Other)
  Sender: FDA-Public Use
  Company Number: None

PATIENT
  Age: 6 Year
  Sex: Female

DRUGS (18)
  1. MYCOPHENOLATE MOFETIL [Suspect]
     Active Substance: MYCOPHENOLATE MOFETIL
     Indication: Immunosuppressant drug therapy
     Dosage: 600 MILLIGRAM/SQ. METER, BID (EVERY 12 HOUR)
     Route: 065
  2. MYCOPHENOLATE MOFETIL [Suspect]
     Active Substance: MYCOPHENOLATE MOFETIL
     Dosage: UNK
     Route: 065
  3. TACROLIMUS [Suspect]
     Active Substance: TACROLIMUS
     Indication: Immunosuppressant drug therapy
     Dosage: 0.3 MILLIGRAM/KILOGRAM, QD (EVERY 1 DAY)
     Route: 065
  4. TACROLIMUS [Suspect]
     Active Substance: TACROLIMUS
     Dosage: UNK
     Route: 065
  5. METHYLPREDNISOLONE [Suspect]
     Active Substance: METHYLPREDNISOLONE
     Indication: Immunosuppressant drug therapy
     Dosage: 1 MILLIGRAM/KILOGRAM, QD (EVERY 1 DAY)
     Route: 065
  6. METHYLPREDNISOLONE [Suspect]
     Active Substance: METHYLPREDNISOLONE
     Dosage: 15 MILLIGRAM/KILOGRAM
     Route: 065
  7. METHYLPREDNISOLONE [Suspect]
     Active Substance: METHYLPREDNISOLONE
     Dosage: 7.5 MILLIGRAM/KILOGRAM, TID (EVERY 8 HOUR)
     Route: 065
  8. PREDNISONE [Suspect]
     Active Substance: PREDNISONE
     Indication: Post transplant lymphoproliferative disorder
     Dosage: UNK (EVERY 1 CYCLE)
     Route: 065
  9. PREDNISONE [Suspect]
     Active Substance: PREDNISONE
     Indication: Diffuse large B-cell lymphoma
     Dosage: UNK
     Route: 065
  10. BASILIXIMAB [Suspect]
     Active Substance: BASILIXIMAB
     Indication: Immunosuppressant drug therapy
     Dosage: 12 MILLIGRAM/SQ. METER (1 TOTAL)
     Route: 065
  11. AMPHOTERICIN B [Suspect]
     Active Substance: AMPHOTERICIN B
     Indication: Pyelonephritis acute
     Dosage: 1 MILLIGRAM/KILOGRAM
     Route: 065
  12. RITUXIMAB [Suspect]
     Active Substance: RITUXIMAB
     Indication: Post transplant lymphoproliferative disorder
     Dosage: UNK (EVERY CYCLE)
     Route: 065
  13. RITUXIMAB [Suspect]
     Active Substance: RITUXIMAB
     Indication: Diffuse large B-cell lymphoma
  14. CYCLOPHOSPHAMIDE [Concomitant]
     Active Substance: CYCLOPHOSPHAMIDE
     Indication: Post transplant lymphoproliferative disorder
     Dosage: UNK (EVERY CYCLE)
     Route: 065
  15. DOXORUBICIN [Concomitant]
     Active Substance: DOXORUBICIN
     Indication: Diffuse large B-cell lymphoma
  16. DOXORUBICIN [Concomitant]
     Active Substance: DOXORUBICIN
     Indication: Post transplant lymphoproliferative disorder
  17. VINCRISTINE [Concomitant]
     Active Substance: VINCRISTINE
     Indication: Diffuse large B-cell lymphoma
     Dosage: UNK (EVERY CYCLE)
     Route: 065
  18. VINCRISTINE [Concomitant]
     Active Substance: VINCRISTINE
     Indication: Post transplant lymphoproliferative disorder

REACTIONS (12)
  - Small intestinal obstruction [Unknown]
  - Toxicity to various agents [Unknown]
  - End stage renal disease [Recovering/Resolving]
  - Acute kidney injury [Recovering/Resolving]
  - Cytopenia [Unknown]
  - Posterior reversible encephalopathy syndrome [Unknown]
  - Central nervous system viral infection [Unknown]
  - Epstein-Barr virus infection [Recovering/Resolving]
  - Gastrointestinal disorder [Unknown]
  - Polyomavirus-associated nephropathy [Recovering/Resolving]
  - Diffuse large B-cell lymphoma [Recovering/Resolving]
  - Post transplant lymphoproliferative disorder [Unknown]
